FAERS Safety Report 9564660 (Version 16)
Quarter: 2014Q3

REPORT INFORMATION
  Report Type: Spontaneous
  Country: US (occurrence: US)
  Receive Date: 20130930
  Receipt Date: 20140929
  Transmission Date: 20150326
  Serious: Yes (Hospitalization, Other)
  Sender: FDA-Public Use
  Company Number: US-PFIZER INC-2013275727

PATIENT
  Age: 71 Year
  Sex: Male
  Weight: 112 kg

DRUGS (19)
  1. ASPIRIN. [Concomitant]
     Active Substance: ASPIRIN
     Dosage: 81 MG, UNK
  2. SUTENT [Suspect]
     Active Substance: SUNITINIB MALATE
     Dosage: 50 MG, DAILY
     Dates: start: 20131104
  3. SUTENT [Suspect]
     Active Substance: SUNITINIB MALATE
     Dosage: 50 MG, DAILY
     Dates: start: 20131230
  4. CALTRATE WITH VITAMIN D [Concomitant]
     Active Substance: CALCIUM CARBONATE\VITAMIN D
     Dosage: UNK
  5. METAMUCIL [Concomitant]
     Active Substance: PLANTAGO SEED
     Dosage: UNK
  6. COUMADIN [Concomitant]
     Active Substance: WARFARIN SODIUM
     Indication: ATRIAL FIBRILLATION
     Dosage: UNK
  7. METFORMIN [Concomitant]
     Active Substance: METFORMIN HYDROCHLORIDE
     Dosage: UNK
  8. VITAMIN B NOS [Concomitant]
     Active Substance: VITAMIN B
     Indication: EYE DISORDER
     Dosage: UNK
  9. SUTENT [Suspect]
     Active Substance: SUNITINIB MALATE
     Indication: RENAL CANCER METASTATIC
     Dosage: 50 MG, CYCLIC (DAILY, USUAL 28 DAYS ON AND 14 DAYS OFF)
     Dates: start: 20130909
  10. LOTENSIN [Concomitant]
     Active Substance: BENAZEPRIL HYDROCHLORIDE
     Dosage: UNK
  11. LIPITOR [Concomitant]
     Active Substance: ATORVASTATIN CALCIUM
     Dosage: UNK
  12. IMODIUM [Concomitant]
     Active Substance: LOPERAMIDE HYDROCHLORIDE
     Dosage: UNK
  13. MEGA B STRESS [Concomitant]
     Dosage: UNK
  14. PRILOSEC [Concomitant]
     Active Substance: OMEPRAZOLE MAGNESIUM
     Dosage: UNK
  15. COMPAZINE [Concomitant]
     Active Substance: PROCHLORPERAZINE MALEATE
     Indication: NAUSEA
     Dosage: UNK
  16. SUTENT [Suspect]
     Active Substance: SUNITINIB MALATE
     Dosage: 50 MG, CYCLIC (DAILY)
     Dates: start: 20140424
  17. METOPROLOL [Concomitant]
     Active Substance: METOPROLOL
     Dosage: UNK
  18. SUTENT [Suspect]
     Active Substance: SUNITINIB MALATE
     Dosage: 50 MG, CYCLIC
     Dates: end: 20140819
  19. MUCINEX-D [Concomitant]

REACTIONS (39)
  - Fatigue [Not Recovered/Not Resolved]
  - Oral pain [Unknown]
  - Haemoptysis [Not Recovered/Not Resolved]
  - Dry mouth [Unknown]
  - Weight decreased [Not Recovered/Not Resolved]
  - Joint swelling [Unknown]
  - Lip dry [Unknown]
  - White blood cell count decreased [Recovered/Resolved]
  - Pyrexia [Unknown]
  - Asthenia [Unknown]
  - Dyspnoea [Not Recovered/Not Resolved]
  - Middle insomnia [Unknown]
  - Nausea [Recovering/Resolving]
  - Vomiting [Unknown]
  - Haemoglobin decreased [Unknown]
  - Chapped lips [Unknown]
  - Chills [Unknown]
  - Arthralgia [Unknown]
  - Tumour haemorrhage [Unknown]
  - Fungal infection [Unknown]
  - Dysgeusia [Not Recovered/Not Resolved]
  - Cough [Not Recovered/Not Resolved]
  - Decreased appetite [Not Recovered/Not Resolved]
  - Arthritis [Unknown]
  - Vomiting [Unknown]
  - Renal cancer metastatic [Unknown]
  - Blood pressure increased [Unknown]
  - Blood calcium abnormal [Unknown]
  - Feeling abnormal [Unknown]
  - Infection [Unknown]
  - Erythema [Unknown]
  - Sinus headache [Unknown]
  - Disease progression [Unknown]
  - Dyspepsia [Unknown]
  - Stomatitis [Unknown]
  - Red blood cell count decreased [Unknown]
  - Alopecia [Unknown]
  - Extra dose administered [Unknown]
  - Diarrhoea [Not Recovered/Not Resolved]

NARRATIVE: CASE EVENT DATE: 20131003
